FAERS Safety Report 8924926 (Version 1)
Quarter: 2012Q4

REPORT INFORMATION
  Report Type: 
  Country: IT (occurrence: IT)
  Receive Date: 20121126
  Receipt Date: 20121126
  Transmission Date: 20130627
  Serious: Yes (Hospitalization)
  Sender: FDA-Public Use
  Company Number: IT-ROCHE-1160053

PATIENT

DRUGS (3)
  1. MABTHERA [Suspect]
     Indication: NON-HODGKIN^S LYMPHOMA
     Route: 065
     Dates: start: 20120808, end: 20120907
  2. CYCLOVIRAN [Concomitant]
     Route: 048
     Dates: start: 20120801, end: 20120921
  3. BACTRIM FORTE [Concomitant]
     Route: 048
     Dates: start: 20120801, end: 20120921

REACTIONS (1)
  - Hepatic failure [Recovered/Resolved]
